FAERS Safety Report 8320098-8 (Version None)
Quarter: 2012Q2

REPORT INFORMATION
  Report Type: 
  Country: None (occurrence: None)
  Receive Date: 20120429
  Receipt Date: 20120418
  Transmission Date: 20120825
  Serious: Yes (Other)
  Sender: FDA-Public Use
  Company Number: US-ELI_LILLY_AND_COMPANY-US201201009217

PATIENT
  Sex: Female

DRUGS (4)
  1. CALCIUM [Concomitant]
  2. FORTEO [Suspect]
     Dosage: 20 UG, QD
  3. FORTEO [Suspect]
     Indication: OSTEOPOROSIS
     Dosage: 20 UG, QD
  4. NEXIUM [Concomitant]

REACTIONS (3)
  - INJECTION SITE HAEMATOMA [None]
  - ASTHENIA [None]
  - RENAL IMPAIRMENT [None]
